FAERS Safety Report 8992035 (Version 2)
Quarter: 2013Q1

REPORT INFORMATION
  Report Type: Spontaneous
  Country: JP (occurrence: JP)
  Receive Date: 20121231
  Receipt Date: 20130206
  Transmission Date: 20140127
  Serious: Yes (Hospitalization, Other)
  Sender: FDA-Public Use
  Company Number: JP-PFIZER INC-2012318266

PATIENT
  Age: 71 Year
  Sex: Female

DRUGS (3)
  1. CELECOX [Suspect]
     Indication: ARTHRALGIA
     Dosage: 100 MG, BID
     Route: 048
     Dates: start: 20121005, end: 201211
  2. CELECOX [Suspect]
     Dosage: UNK
     Route: 048
     Dates: start: 2012
  3. LIPITOR [Concomitant]
     Dosage: 10 MG UID

REACTIONS (1)
  - Pulmonary infarction [Recovered/Resolved]
